FAERS Safety Report 22658035 (Version 1)
Quarter: 2023Q2

REPORT INFORMATION
  Report Type: Spontaneous
  Country: RU (occurrence: RU)
  Receive Date: 20230630
  Receipt Date: 20230630
  Transmission Date: 20230722
  Serious: Yes (Other)
  Sender: FDA-Public Use
  Company Number: RU-ROCHE-3372955

PATIENT
  Sex: Female

DRUGS (2)
  1. CAPECITABINE [Suspect]
     Active Substance: CAPECITABINE
     Indication: Product used for unknown indication
     Route: 048
  2. IXABEPILONE [Concomitant]
     Active Substance: IXABEPILONE

REACTIONS (11)
  - Neuropathy peripheral [Unknown]
  - Palmar-plantar erythrodysaesthesia syndrome [Unknown]
  - Asthenia [Unknown]
  - Sleep disorder [Unknown]
  - Diarrhoea [Unknown]
  - Nail disorder [Unknown]
  - Erythema [Unknown]
  - Skin exfoliation [Unknown]
  - Pain in extremity [Unknown]
  - Burning sensation [Unknown]
  - Nail discolouration [Unknown]
